FAERS Safety Report 10649043 (Version 1)
Quarter: 2014Q4

REPORT INFORMATION
  Report Type: Spontaneous
  Country: FR (occurrence: None)
  Receive Date: 20141210
  Receipt Date: 20141210
  Transmission Date: 20150529
  Serious: Yes (Hospitalization)
  Sender: FDA-Public Use
  Company Number: 2653864

PATIENT
  Age: 69 Year
  Sex: Male
  Weight: 54 kg

DRUGS (2)
  1. TAXOL [Suspect]
     Active Substance: PACLITAXEL
     Indication: TONGUE NEOPLASM MALIGNANT STAGE UNSPECIFIED
     Dates: start: 20140717, end: 20140717
  2. CARBOPLATIN. [Suspect]
     Active Substance: CARBOPLATIN
     Indication: TONGUE NEOPLASM MALIGNANT STAGE UNSPECIFIED
     Dates: start: 20140717, end: 20140717

REACTIONS (8)
  - Asthenia [None]
  - Haematotoxicity [None]
  - Anaemia [None]
  - Decreased appetite [None]
  - Weight decreased [None]
  - Hyperthermia [None]
  - Oral candidiasis [None]
  - Thrombocytopenia [None]

NARRATIVE: CASE EVENT DATE: 20140719
